FAERS Safety Report 6072407-0 (Version None)
Quarter: 2009Q1

REPORT INFORMATION
  Report Type: 
  Country: None (occurrence: None)
  Receive Date: 20090209
  Receipt Date: 20090209
  Transmission Date: 20090719
  Serious: No
  Sender: FDA-Public Use
  Company Number: None

PATIENT
  Age: 64 Year
  Sex: Male
  Weight: 78.9259 kg

DRUGS (2)
  1. FLUTICASONE PROPIONATE [Suspect]
     Indication: SEASONAL ALLERGY
     Dosage: 1 PUFF EACH NOSTRIL TWICE DAILY NASAL
     Route: 045
     Dates: start: 19950101, end: 20090206
  2. FLUTICASONE PROPIONATE [Suspect]
     Indication: SLEEP APNOEA SYNDROME
     Dosage: 1 PUFF EACH NOSTRIL TWICE DAILY NASAL
     Route: 045
     Dates: start: 19950101, end: 20090206

REACTIONS (4)
  - CONDITION AGGRAVATED [None]
  - DRUG INEFFECTIVE [None]
  - NASAL CONGESTION [None]
  - THERAPEUTIC RESPONSE UNEXPECTED WITH DRUG SUBSTITUTION [None]
